FAERS Safety Report 9275085 (Version 1)
Quarter: 2013Q2

REPORT INFORMATION
  Report Type: Spontaneous
  Country: FR (occurrence: FR)
  Receive Date: 20130507
  Receipt Date: 20130507
  Transmission Date: 20140414
  Serious: Yes (Hospitalization)
  Sender: FDA-Public Use
  Company Number: FR-PFIZER INC-2013140089

PATIENT
  Age: 62 Year
  Sex: Female

DRUGS (5)
  1. RAMIPRIL [Suspect]
     Indication: ACUTE MYOCARDIAL INFARCTION
     Dosage: UNK
     Route: 048
     Dates: start: 20130312, end: 20130318
  2. BISOPROLOL FUMARATE [Suspect]
     Indication: ACUTE MYOCARDIAL INFARCTION
     Dosage: UNK
     Route: 048
     Dates: start: 20130312, end: 20130318
  3. CRESTOR [Suspect]
     Indication: ACUTE MYOCARDIAL INFARCTION
     Dosage: UNK
     Route: 048
     Dates: start: 20130312, end: 20130318
  4. EFIENT [Suspect]
     Indication: ACUTE MYOCARDIAL INFARCTION
     Dosage: 10.0 MILLIGRAMS, EVERY DAY
     Route: 048
     Dates: start: 20130312, end: 20130315
  5. KARDEGIC [Concomitant]
     Indication: ACUTE MYOCARDIAL INFARCTION
     Dosage: 75 MG PER DAY
     Route: 048
     Dates: start: 20130312

REACTIONS (1)
  - Acute generalised exanthematous pustulosis [Recovering/Resolving]
